FAERS Safety Report 15545128 (Version 7)
Quarter: 2024Q3

REPORT INFORMATION
  Report Type: Spontaneous
  Country: FR (occurrence: FR)
  Receive Date: 20181024
  Receipt Date: 20240827
  Transmission Date: 20241016
  Serious: Yes (Other)
  Sender: AUROBINDO
  Company Number: FR-MLMSERVICE-20181005-1412870-1

PATIENT
  Age: 63 Year
  Sex: Female

DRUGS (12)
  1. CARBOPLATIN [Suspect]
     Active Substance: CARBOPLATIN
     Indication: Ovarian cancer recurrent
     Dosage: 1 DOSAGE FORM
     Route: 065
  2. CARBOPLATIN [Suspect]
     Active Substance: CARBOPLATIN
     Dosage: CYCLICAL (TARGET AREA UNDER THE CURVE, AUC 6)
     Route: 065
     Dates: start: 2012
  3. GEMCITABINE [Suspect]
     Active Substance: GEMCITABINE
     Indication: Ovarian cancer recurrent
     Dosage: 1 DOSAGE FORM
     Route: 065
     Dates: start: 2015
  4. PACLITAXEL [Suspect]
     Active Substance: PACLITAXEL
     Indication: Ovarian cancer recurrent
     Dosage: 175 MILLIGRAM/SQ. METER
     Route: 065
  5. BEVACIZUMAB [Suspect]
     Active Substance: BEVACIZUMAB
     Indication: Ovarian cancer recurrent
     Dosage: DURING CYCLES 3, 4 AND 5.
     Route: 065
  6. GRANULOCYTE COLONY-STIMULATING FACTOR NOS [Suspect]
     Active Substance: GRANULOCYTE COLONY-STIMULATING FACTOR NOS
     Indication: Palliative care
     Dosage: UNK
     Route: 065
     Dates: start: 201406, end: 201502
  7. BEVACIZUMAB [Concomitant]
     Active Substance: BEVACIZUMAB
     Indication: Ovarian cancer
     Dosage: 175 MILLIGRAM/SQ. METER (CYCLES 3, 4, AND 5)
     Route: 065
     Dates: start: 2012
  8. DOXORUBICIN [Concomitant]
     Active Substance: DOXORUBICIN
     Indication: Palliative care
     Dosage: UNK
     Route: 065
     Dates: start: 201405
  9. OLAPARIB [Concomitant]
     Active Substance: OLAPARIB
     Indication: Product used for unknown indication
     Dosage: UNK
     Route: 065
  10. PACLITAXEL [Concomitant]
     Active Substance: PACLITAXEL
     Indication: Ovarian cancer
     Dosage: 175 MILLIGRAM/SQ. METER, CYCLICAL (CYCLES 1, 2 AND 6)
     Route: 065
     Dates: start: 2012
  11. HUMAN RED BLOOD CELL [Concomitant]
     Active Substance: HUMAN RED BLOOD CELL
     Indication: Product used for unknown indication
     Dosage: UNK
     Route: 065
  12. TRABECTEDIN [Concomitant]
     Active Substance: TRABECTEDIN
     Indication: Palliative care
     Dosage: UNK
     Route: 065
     Dates: start: 201405

REACTIONS (11)
  - Neuropathy peripheral [Unknown]
  - Pneumonia [Unknown]
  - Alopecia [Unknown]
  - Asthenia [Unknown]
  - Neutropenia [Unknown]
  - Nausea [Unknown]
  - Thrombocytopenia [Unknown]
  - Hypersensitivity [Unknown]
  - Anaemia [Unknown]
  - Malignant neoplasm progression [Unknown]
  - Toxicity to various agents [Unknown]

NARRATIVE: CASE EVENT DATE: 20120101
